FAERS Safety Report 10085643 (Version 2)
Quarter: 2014Q2

REPORT INFORMATION
  Report Type: Spontaneous
  Country: US (occurrence: None)
  Receive Date: 20140416
  Receipt Date: 20140428
  Transmission Date: 20141212
  Serious: Yes (Other)
  Sender: FDA-Public Use
  Company Number: AUR-APL-2014-04540

PATIENT
  Age: 8 Year
  Sex: Male

DRUGS (5)
  1. CETIRIZINE (CETIRIZINE) [Suspect]
     Indication: SEASONAL ALLERGY
     Dosage: 20 MG, (10 MG, 2 IN 1 D)
     Route: 048
  2. FEXOFENADINE (FEXOFENADINE) (FEXOFENADINE) [Suspect]
     Indication: SEASONAL ALLERGY
     Dosage: (180 MG,1 D)
     Route: 048
  3. DIPHENHYDRAMINE (DIPHENHYDRAMINE) [Suspect]
     Indication: SEASONAL ALLERGY
     Dosage: 25 MG, NIGHTLY
     Route: 048
  4. LORATADINE (LORATADINE) (LORATADINE) [Suspect]
     Indication: SEASONAL ALLERGY
     Dosage: 10 MG (5 MG, 2 IN 1 D)
     Route: 048
  5. MONTELUKAST (MONTELUKAST) [Concomitant]

REACTIONS (1)
  - Idiopathic urticaria [None]
